FAERS Safety Report 24959284 (Version 1)
Quarter: 2025Q1

REPORT INFORMATION
  Report Type: Spontaneous
  Country: GB (occurrence: GB)
  Receive Date: 20250212
  Receipt Date: 20250212
  Transmission Date: 20250408
  Serious: Yes (Death, Other)
  Sender: STRIDES
  Company Number: None

PATIENT
  Age: 70 Year
  Sex: Female

DRUGS (26)
  1. PREDNISOLONE [Suspect]
     Active Substance: PREDNISOLONE
     Indication: Episcleritis
     Route: 048
  2. PREDNISOLONE [Suspect]
     Active Substance: PREDNISOLONE
     Indication: Glaucoma
  3. ACETAZOLAMIDE [Suspect]
     Active Substance: ACETAZOLAMIDE
     Indication: Glaucoma
     Route: 065
  4. ACETAZOLAMIDE [Suspect]
     Active Substance: ACETAZOLAMIDE
     Indication: Episcleritis
     Route: 047
  5. ACETAZOLAMIDE [Suspect]
     Active Substance: ACETAZOLAMIDE
     Indication: Ocular cancer metastatic
     Route: 065
  6. ETOPOSIDE [Suspect]
     Active Substance: ETOPOSIDE
     Indication: Neuroendocrine tumour of the lung metastatic
     Route: 065
  7. DOXORUBICIN [Suspect]
     Active Substance: DOXORUBICIN
     Indication: Neuroendocrine tumour of the lung metastatic
     Route: 065
  8. SODIUM HYALURONATE [Suspect]
     Active Substance: HYALURONATE SODIUM
     Indication: Episcleritis
     Route: 065
  9. SODIUM HYALURONATE [Suspect]
     Active Substance: HYALURONATE SODIUM
     Indication: Ocular cancer metastatic
     Route: 065
  10. SODIUM HYALURONATE [Suspect]
     Active Substance: HYALURONATE SODIUM
     Route: 065
  11. BIMATOPROST [Suspect]
     Active Substance: BIMATOPROST
     Indication: Glaucoma
     Route: 047
  12. BIMATOPROST [Suspect]
     Active Substance: BIMATOPROST
     Indication: Episcleritis
  13. BRIMONIDINE TARTRATE [Suspect]
     Active Substance: BRIMONIDINE TARTRATE
     Indication: Glaucoma
     Route: 047
  14. BRIMONIDINE TARTRATE [Suspect]
     Active Substance: BRIMONIDINE TARTRATE
     Indication: Ocular cancer metastatic
  15. DEXAMETHASONE [Suspect]
     Active Substance: DEXAMETHASONE
     Indication: Episcleritis
  16. DEXAMETHASONE [Suspect]
     Active Substance: DEXAMETHASONE
     Indication: Ocular cancer metastatic
  17. DEXAMETHASONE [Suspect]
     Active Substance: DEXAMETHASONE
     Route: 047
  18. DEXAMETHASONE [Suspect]
     Active Substance: DEXAMETHASONE
  19. TIMOLOL MALEATE [Suspect]
     Active Substance: TIMOLOL MALEATE
     Indication: Episcleritis
  20. CYCLOPENTOLATE [Suspect]
     Active Substance: CYCLOPENTOLATE
     Indication: Ocular cancer metastatic
     Route: 061
  21. DORZOLAMIDE HYDROCHLORIDE\TIMOLOL MALEATE [Suspect]
     Active Substance: DORZOLAMIDE HYDROCHLORIDE\TIMOLOL MALEATE
     Indication: Ocular cancer metastatic
     Route: 065
  22. RETINOL [Suspect]
     Active Substance: RETINOL
     Indication: Ocular cancer metastatic
  23. LATANOPROST [Suspect]
     Active Substance: LATANOPROST
     Indication: Ocular cancer metastatic
  24. CARBOPLATIN [Suspect]
     Active Substance: CARBOPLATIN
     Indication: Neuroendocrine tumour of the lung metastatic
     Route: 065
  25. CYCLOPHOSPHAMIDE [Suspect]
     Active Substance: CYCLOPHOSPHAMIDE
     Indication: Neuroendocrine tumour of the lung metastatic
     Route: 065
  26. VINCRISTINE [Suspect]
     Active Substance: VINCRISTINE
     Indication: Neuroendocrine tumour of the lung metastatic
     Route: 065

REACTIONS (5)
  - Death [Fatal]
  - Malignant neoplasm progression [Unknown]
  - Drug ineffective [Unknown]
  - Gastrointestinal disorder [Unknown]
  - Off label use [Unknown]
